FAERS Safety Report 14656779 (Version 1)
Quarter: 2018Q1

REPORT INFORMATION
  Report Type: Spontaneous
  Country: US (occurrence: US)
  Receive Date: 20180319
  Receipt Date: 20180319
  Transmission Date: 20180509
  Serious: No
  Sender: FDA-Public Use
  Company Number: US-SA-2017SA065756

PATIENT
  Age: 50 Year
  Sex: Female

DRUGS (2)
  1. NASACORT ALLERGY 24HR [Suspect]
     Active Substance: TRIAMCINOLONE ACETONIDE
     Indication: HYPERSENSITIVITY
     Dosage: 55MCG EACH NARES
     Route: 065
     Dates: start: 201704
  2. NASACORT ALLERGY 24HR [Suspect]
     Active Substance: TRIAMCINOLONE ACETONIDE
     Indication: NASAL CONGESTION
     Dosage: 55MCG EACH NARES
     Route: 065
     Dates: start: 201704

REACTIONS (2)
  - Nasal congestion [Not Recovered/Not Resolved]
  - Therapeutic response decreased [Unknown]
